FAERS Safety Report 8571348 (Version 3)
Quarter: 2012Q4

REPORT INFORMATION
  Report Type: 
  Country: BR (occurrence: BR)
  Receive Date: 20120521
  Receipt Date: 20120910
  Transmission Date: 20130627
  Serious: Yes (Hospitalization)
  Sender: FDA-Public Use
  Company Number: BR-ROCHE-1070288

PATIENT
  Age: 59 Year
  Sex: Female
  Weight: 60 kg

DRUGS (4)
  1. RIVOTRIL [Suspect]
     Indication: CONVULSION
     Dosage: 2.5 mg/ml
     Route: 048
     Dates: start: 20120424
  2. RIVOTRIL [Suspect]
     Dosage: 25 mg/ml
     Route: 048
  3. LAMOTRIGINE [Concomitant]
     Indication: CONVULSION
     Route: 048
  4. LAMOTRIGINE [Concomitant]
     Indication: EPILEPSY

REACTIONS (2)
  - Convulsion [Recovered/Resolved]
  - Headache [Recovered/Resolved]
